FAERS Safety Report 9663616 (Version 1)
Quarter: 2013Q4

REPORT INFORMATION
  Report Type: Spontaneous
  Country: US (occurrence: US)
  Receive Date: 20131101
  Receipt Date: 20131101
  Transmission Date: 20140711
  Serious: No
  Sender: FDA-Public Use
  Company Number: US-ENDO PHARMACEUTICALS INC.-CLOZ20130002

PATIENT
  Sex: Female

DRUGS (2)
  1. CLONAZEPAM 0.5MG [Suspect]
     Indication: ANXIETY
     Route: 048
  2. HYDROXYZINE HYDROCHLORIDE TABLETS [Concomitant]
     Indication: PRODUCT USED FOR UNKNOWN INDICATION
     Dosage: UNK
     Route: 065

REACTIONS (1)
  - Gastrooesophageal reflux disease [Not Recovered/Not Resolved]
